FAERS Safety Report 4485182-8 (Version None)
Quarter: 2004Q4

REPORT INFORMATION
  Report Type: 
  Country: None (occurrence: None)
  Receive Date: 20041026
  Receipt Date: 20040304
  Transmission Date: 20050328
  Serious: No
  Sender: FDA-Public Use
  Company Number: US-BRISTOL-MYERS SQUIBB COMPANY-12524591

PATIENT

DRUGS (1)
  1. GLUCOPHAGE XR [Suspect]

REACTIONS (3)
  - ABNORMAL FAECES [None]
  - PAINFUL DEFAECATION [None]
  - RECTAL HAEMORRHAGE [None]
